FAERS Safety Report 10314330 (Version 1)
Quarter: 2014Q3

REPORT INFORMATION
  Report Type: Spontaneous
  Country: FR (occurrence: FR)
  Receive Date: 20140718
  Receipt Date: 20140718
  Transmission Date: 20150326
  Serious: Yes (Other)
  Sender: FDA-Public Use
  Company Number: FR-GLAXOSMITHKLINE-B1012748A

PATIENT
  Age: 69 Year
  Sex: Female

DRUGS (4)
  1. IXEL [Concomitant]
     Active Substance: MILNACIPRAN HYDROCHLORIDE
     Indication: AFFECTIVE DISORDER
     Route: 065
  2. LAMICTAL [Suspect]
     Active Substance: LAMOTRIGINE
     Indication: AFFECTIVE DISORDER
     Dosage: 12.5MG PER DAY
     Route: 048
     Dates: start: 20140215, end: 20140429
  3. SIMVASTATINE [Concomitant]
     Active Substance: SIMVASTATIN
     Route: 065
  4. CACIT D3 [Concomitant]
     Active Substance: CALCIUM\CHOLECALCIFEROL
     Route: 065

REACTIONS (1)
  - Retinal vein thrombosis [Recovering/Resolving]

NARRATIVE: CASE EVENT DATE: 20140428
